FAERS Safety Report 9024491 (Version 1)
Quarter: 2013Q1

REPORT INFORMATION
  Report Type: Spontaneous
  Country: FR (occurrence: None)
  Receive Date: 20130104
  Receipt Date: 20130104
  Transmission Date: 20140127
  Serious: Yes (Life-Threatening, Hospitalization)
  Sender: FDA-Public Use
  Company Number: 2012-8385

PATIENT
  Age: 58 Year
  Sex: 0

DRUGS (1)
  1. BOTULINUM TOXIN TYPE A [Suspect]
     Indication: HEMIPLEGIA

REACTIONS (1)
  - Pneumothorax [None]
